FAERS Safety Report 16839129 (Version 3)
Quarter: 2020Q2

REPORT INFORMATION
  Report Type: Spontaneous
  Country: US (occurrence: US)
  Receive Date: 20190923
  Receipt Date: 20200602
  Transmission Date: 20200713
  Serious: Yes (Hospitalization, Other)
  Sender: FDA-Public Use
  Company Number: US-NAPPMUNDI-USA-2019-0148321

PATIENT
  Sex: Female

DRUGS (3)
  1. OXYCONTIN [Suspect]
     Active Substance: OXYCODONE HYDROCHLORIDE
     Dosage: 60 UNK, UNK
     Route: 048
     Dates: start: 2002
  2. OXYCONTIN [Suspect]
     Active Substance: OXYCODONE HYDROCHLORIDE
     Indication: BACK INJURY
     Dosage: 60 MG, BID
     Route: 048
     Dates: start: 2004
  3. OXYCONTIN [Suspect]
     Active Substance: OXYCODONE HYDROCHLORIDE
     Indication: PAIN
     Dosage: 10 MG, UNK
     Route: 048
     Dates: start: 2004

REACTIONS (5)
  - Somnolence [Unknown]
  - Agitation [Unknown]
  - Myocardial infarction [Unknown]
  - Tooth loss [Unknown]
  - Renal failure [Unknown]

NARRATIVE: CASE EVENT DATE: 2002
